FAERS Safety Report 17679005 (Version 4)
Quarter: 2020Q2

REPORT INFORMATION
  Report Type: Report from Study
  Country: None (occurrence: US)
  Receive Date: 20200417
  Receipt Date: 20200428
  Transmission Date: 20200714
  Serious: Yes (Hospitalization)
  Sender: FDA-Public Use
  Company Number: US-ABBVIE-20P-163-3366745-00

PATIENT
  Age: 58 Year
  Sex: Male
  Weight: 83.99 kg

DRUGS (3)
  1. IMBRUVICA [Suspect]
     Active Substance: IBRUTINIB
     Indication: MANTLE CELL LYMPHOMA
     Route: 048
     Dates: start: 20190222
  2. VENETOCLAX. [Suspect]
     Active Substance: VENETOCLAX
     Indication: MANTLE CELL LYMPHOMA
     Route: 048
     Dates: start: 20200331
  3. IMBRUVICA [Suspect]
     Active Substance: IBRUTINIB
     Route: 048
     Dates: start: 20181109

REACTIONS (17)
  - Haemoglobin abnormal [Unknown]
  - Nerve compression [Recovering/Resolving]
  - Chest pain [Recovered/Resolved]
  - Blood pressure decreased [Unknown]
  - Retroperitoneal lymphadenopathy [Unknown]
  - Blood pressure increased [Unknown]
  - Back pain [Unknown]
  - White blood cell count abnormal [Unknown]
  - Lymphocyte count increased [Unknown]
  - Anaemia [Unknown]
  - Haematochezia [Unknown]
  - Splenomegaly [Unknown]
  - Haemangioma of liver [Unknown]
  - Abdominal lymphadenopathy [Unknown]
  - Pain in extremity [Unknown]
  - Oxygen saturation decreased [Unknown]
  - Lymphadenopathy [Not Recovered/Not Resolved]

NARRATIVE: CASE EVENT DATE: 201912
